FAERS Safety Report 17583970 (Version 6)
Quarter: 2021Q3

REPORT INFORMATION
  Report Type: Other
  Country: US (occurrence: US)
  Receive Date: 20200326
  Receipt Date: 20210721
  Transmission Date: 20211014
  Serious: Yes (Other)
  Sender: FDA-Public Use
  Company Number: US-ROCHE-2466312

PATIENT
  Sex: Female
  Weight: 65.32 kg

DRUGS (14)
  1. ESBRIET [Suspect]
     Active Substance: PIRFENIDONE
     Dosage: 3 TABLETS BY MOUTH 3 TIMES A DAY
     Route: 048
  2. OFEV [Concomitant]
     Active Substance: NINTEDANIB
     Dosage: TAKE 1 CAPSULE BY ORAL ROUTE 2 TIMES EVERY DAY
     Route: 048
     Dates: start: 20181221
  3. SERTRALINE [Concomitant]
     Active Substance: SERTRALINE HYDROCHLORIDE
  4. OMEPRAZOLE. [Concomitant]
     Active Substance: OMEPRAZOLE
  5. PROMETHAZINE WITH CODEINE [Concomitant]
     Active Substance: CODEINE PHOSPHATE\PROMETHAZINE HYDROCHLORIDE
     Dosage: PROMETHAZINE 6.25 MG AND CODEINE 10 MG/5 ML
     Route: 048
     Dates: start: 20181127
  6. SIMVASTATIN. [Concomitant]
     Active Substance: SIMVASTATIN
  7. ESBRIET [Suspect]
     Active Substance: PIRFENIDONE
     Indication: IDIOPATHIC PULMONARY FIBROSIS
     Dosage: TAKE 1 TABLET BY MOUTH 3 TIMES A DAY
     Route: 048
  8. ESBRIET [Suspect]
     Active Substance: PIRFENIDONE
     Indication: PULMONARY FIBROSIS
     Dosage: TAKE 2 TABLET(S) BY MOUTH 3 TIMES A DAY
     Route: 048
  9. ESBRIET [Suspect]
     Active Substance: PIRFENIDONE
     Route: 048
  10. ESBRIET [Suspect]
     Active Substance: PIRFENIDONE
     Route: 048
  11. ASPIRIN. [Concomitant]
     Active Substance: ASPIRIN
  12. ESBRIET [Suspect]
     Active Substance: PIRFENIDONE
     Dosage: THREE TABLETS, THREE TIMES A DAY
     Route: 048
  13. PROMETHAZINE [Concomitant]
     Active Substance: PROMETHAZINE HYDROCHLORIDE
  14. ONDANSETRON HCL [Concomitant]
     Active Substance: ONDANSETRON HYDROCHLORIDE
     Dosage: 1 TABLET
     Route: 048
     Dates: start: 20180927, end: 20180927

REACTIONS (10)
  - Abdominal pain upper [Unknown]
  - Nausea [Unknown]
  - Headache [Unknown]
  - Circumstance or information capable of leading to medication error [Unknown]
  - Urinary tract infection [Unknown]
  - Somnolence [Not Recovered/Not Resolved]
  - Back pain [Not Recovered/Not Resolved]
  - Secretion discharge [Unknown]
  - Herpes zoster [Unknown]
  - Cough [Not Recovered/Not Resolved]
